FAERS Safety Report 7133330-3 (Version None)
Quarter: 2010Q4

REPORT INFORMATION
  Report Type: 
  Country: None (occurrence: None)
  Receive Date: 20101202
  Receipt Date: 20101201
  Transmission Date: 20110411
  Serious: Yes (Other)
  Sender: FDA-Public Use
  Company Number: US-CEPHALON-2010006239

PATIENT
  Age: 42 Year
  Sex: Male

DRUGS (2)
  1. NUVIGIL [Suspect]
     Indication: CIRCADIAN RHYTHM SLEEP DISORDER
     Route: 048
  2. SUBOXONE [Suspect]
     Indication: DEPENDENCE

REACTIONS (2)
  - ANGIOEDEMA [None]
  - WEIGHT INCREASED [None]
